FAERS Safety Report 11610381 (Version 3)
Quarter: 2015Q4

REPORT INFORMATION
  Report Type: Spontaneous
  Country: US (occurrence: US)
  Receive Date: 20151008
  Receipt Date: 20151022
  Transmission Date: 20160304
  Serious: Yes (Life-Threatening, Hospitalization, Disabling, Other)
  Sender: FDA-Public Use
  Company Number: US-009507513-1509USA015078

PATIENT
  Sex: Female

DRUGS (5)
  1. CUBICIN [Suspect]
     Active Substance: DAPTOMYCIN
     Indication: SKIN INFECTION
     Dosage: 600 MG, QD, (DURATION: 5 TO 6 WEEKS)
  2. LANTUS [Concomitant]
     Active Substance: INSULIN GLARGINE
     Dosage: UNK
  3. CUBICIN [Suspect]
     Active Substance: DAPTOMYCIN
     Indication: DIABETIC FOOT
     Dosage: 600 MG, QD
     Dates: start: 20131022, end: 201312
  4. CUBICIN [Suspect]
     Active Substance: DAPTOMYCIN
     Dosage: 600 MG, QD
     Dates: end: 201508
  5. HUMALOG [Concomitant]
     Active Substance: INSULIN LISPRO
     Dosage: UNK

REACTIONS (1)
  - Infection [Not Recovered/Not Resolved]
